FAERS Safety Report 17949632 (Version 1)
Quarter: 2020Q2

REPORT INFORMATION
  Report Type: Spontaneous
  Country: US (occurrence: US)
  Receive Date: 20200626
  Receipt Date: 20200626
  Transmission Date: 20200714
  Serious: Yes (Death)
  Sender: FDA-Public Use
  Company Number: None

PATIENT
  Age: 73 Year
  Sex: Male
  Weight: 97.4 kg

DRUGS (2)
  1. CONVALESCENT PLASMA [Concomitant]
     Active Substance: HUMAN PLASMA
     Dates: start: 20200604, end: 20200604
  2. REMDESIVIR. [Suspect]
     Active Substance: REMDESIVIR
     Indication: COVID-19
     Route: 042
     Dates: start: 20200604, end: 20200613

REACTIONS (4)
  - Hypotension [None]
  - Respiratory distress [None]
  - Gastrointestinal haemorrhage [None]
  - Agonal rhythm [None]

NARRATIVE: CASE EVENT DATE: 20200615
